FAERS Safety Report 4912523-7 (Version None)
Quarter: 2006Q1

REPORT INFORMATION
  Report Type: 
  Country: None (occurrence: None)
  Receive Date: 20060215
  Receipt Date: 20050609
  Transmission Date: 20060701
  Serious: No
  Sender: FDA-Public Use
  Company Number: US-GLAXOSMITHKLINE-A0562027A

PATIENT
  Age: 38 Year
  Sex: Female

DRUGS (2)
  1. VALTREX [Suspect]
     Dosage: 1G TWICE PER DAY
     Route: 048
     Dates: start: 20050607, end: 20050609
  2. NO CONCURRENT MEDICATION [Concomitant]

REACTIONS (2)
  - DIARRHOEA [None]
  - NAUSEA [None]
